FAERS Safety Report 21087469 (Version 1)
Quarter: 2022Q3

REPORT INFORMATION
  Report Type: Spontaneous
  Country: CA (occurrence: CA)
  Receive Date: 20220715
  Receipt Date: 20220715
  Transmission Date: 20221027
  Serious: Yes (Congenital Anomaly, Other)
  Sender: FDA-Public Use
  Company Number: CA-TEVA-2022-CA-2053258

PATIENT

DRUGS (3)
  1. SPIRONOLACTONE [Suspect]
     Active Substance: SPIRONOLACTONE
     Indication: Foetal exposure during pregnancy
     Route: 064
  2. VALSARTAN [Suspect]
     Active Substance: VALSARTAN
     Indication: Foetal exposure during pregnancy
     Route: 064
  3. LASIX [Suspect]
     Active Substance: FUROSEMIDE
     Indication: Foetal exposure during pregnancy
     Route: 064

REACTIONS (6)
  - Bicuspid aortic valve [Unknown]
  - Hypocalvaria [Unknown]
  - Limb reduction defect [Unknown]
  - Potter^s syndrome [Unknown]
  - Renal tubular dysfunction [Unknown]
  - Foetal exposure during pregnancy [Unknown]
